FAERS Safety Report 5659620-9 (Version None)
Quarter: 2008Q1

REPORT INFORMATION
  Report Type: 
  Country: None (occurrence: None)
  Receive Date: 20080311
  Receipt Date: 20080311
  Transmission Date: 20080703
  Serious: Yes (Other)
  Sender: FDA-Public Use
  Company Number: None

PATIENT
  Age: 41 Year
  Sex: Male
  Weight: 87 kg

DRUGS (6)
  1. HEPARIN [Suspect]
     Indication: ANTICOAGULANT THERAPY
     Dosage: 6000 UNIT BOLUS THREE TIMES WEEKLY HEMODIALYSIS
     Route: 010
     Dates: start: 20031017, end: 20080201
  2. HEPARIN [Suspect]
     Indication: HAEMODIALYSIS
     Dosage: 6000 UNIT BOLUS THREE TIMES WEEKLY HEMODIALYSIS
     Route: 010
     Dates: start: 20031017, end: 20080201
  3. HEPARIN [Suspect]
  4. HEPARIN [Suspect]
     Indication: ANTICOAGULANT THERAPY
     Dosage: 500 UNIT/HR THREE TIMES WEEKLY THREE TIMES WEEKLY HEMODIALYSIS
     Route: 010
     Dates: start: 20031017, end: 20080201
  5. HEPARIN [Suspect]
     Indication: HAEMODIALYSIS
     Dosage: 500 UNIT/HR THREE TIMES WEEKLY THREE TIMES WEEKLY HEMODIALYSIS
     Route: 010
     Dates: start: 20031017, end: 20080201
  6. HEPARIN [Suspect]

REACTIONS (3)
  - HYPOTENSION [None]
  - NAUSEA [None]
  - PARAESTHESIA [None]
